FAERS Safety Report 6170294-3 (Version None)
Quarter: 2009Q2

REPORT INFORMATION
  Report Type: 
  Country: None (occurrence: None)
  Receive Date: 20090427
  Receipt Date: 20090427
  Transmission Date: 20091009
  Serious: Yes (Other)
  Sender: FDA-Public Use
  Company Number: None

PATIENT
  Age: 2 Year
  Sex: Female
  Weight: 10.2 kg

DRUGS (2)
  1. WARFARIN SODIUM [Suspect]
     Indication: ARTERIAL STENT INSERTION
     Dosage: 1MG DAILY ORAL
     Route: 048
     Dates: start: 20090410
  2. WARFARIN SODIUM [Suspect]
     Indication: PULMONARY ARTERY THERAPEUTIC PROCEDURE
     Dosage: 1MG DAILY ORAL
     Route: 048
     Dates: start: 20090410

REACTIONS (1)
  - DRUG HYPERSENSITIVITY [None]
